FAERS Safety Report 7643570-2 (Version None)
Quarter: 2011Q3

REPORT INFORMATION
  Report Type: 
  Country: None (occurrence: None)
  Receive Date: 20110729
  Receipt Date: 20110720
  Transmission Date: 20111222
  Serious: Yes (Hospitalization, Other)
  Sender: FDA-Public Use
  Company Number: JP-JNJFOC-20110507363

PATIENT
  Sex: Female
  Weight: 41 kg

DRUGS (4)
  1. GALANTAMINE HYDROBROMIDE [Suspect]
     Indication: DEMENTIA ALZHEIMER'S TYPE
     Route: 048
     Dates: start: 20110428, end: 20110429
  2. MAGMITT [Concomitant]
     Indication: CONSTIPATION
     Route: 048
  3. SEROQUEL [Concomitant]
     Indication: SCHIZOPHRENIA
     Route: 048
  4. PANTOSIN [Concomitant]
     Indication: CONSTIPATION
     Route: 048

REACTIONS (4)
  - PNEUMONIA ASPIRATION [None]
  - DECREASED APPETITE [None]
  - ILEUS PARALYTIC [None]
  - VOMITING [None]
